FAERS Safety Report 5906986-8 (Version None)
Quarter: 2008Q4

REPORT INFORMATION
  Report Type: 
  Country: None (occurrence: None)
  Receive Date: 20081003
  Receipt Date: 20080414
  Transmission Date: 20090506
  Serious: Yes (Death)
  Sender: FDA-Public Use
  Company Number: CA-RANBAXY-2008RR-14452

PATIENT

DRUGS (5)
  1. METOPROLOL COMPRIMATE 50MG [Suspect]
  2. TIAZAC [Suspect]
  3. LOSARTAN [Concomitant]
  4. WARFARIN SODIUM [Concomitant]
  5. CLODRONIC ACID [Concomitant]

REACTIONS (2)
  - CARDIOGENIC SHOCK [None]
  - DRUG INTERACTION [None]
